FAERS Safety Report 5067772-7 (Version None)
Quarter: 2006Q3

REPORT INFORMATION
  Report Type: 
  Country: None (occurrence: None)
  Receive Date: 20060802
  Receipt Date: 20060718
  Transmission Date: 20061208
  Serious: Yes (Life-Threatening, Hospitalization, Other)
  Sender: FDA-Public Use
  Company Number: US-GLAXOSMITHKLINE-A0612796A

PATIENT
  Age: 25 Year
  Sex: Female

DRUGS (1)
  1. WELLBUTRIN XL [Suspect]
     Indication: DEPRESSION
     Dosage: 3600MG SINGLE DOSE
     Route: 048
     Dates: start: 20040101, end: 20060701

REACTIONS (13)
  - CONVULSION [None]
  - DECREASED APPETITE [None]
  - DECREASED INTEREST [None]
  - DEPRESSED MOOD [None]
  - DEPRESSION [None]
  - DISTURBANCE IN ATTENTION [None]
  - DRUG INEFFECTIVE [None]
  - INTENTIONAL OVERDOSE [None]
  - LIBIDO DECREASED [None]
  - MOOD SWINGS [None]
  - RESPIRATORY FAILURE [None]
  - SLEEP DISORDER [None]
  - SUICIDE ATTEMPT [None]
